FAERS Safety Report 4501782-0 (Version None)
Quarter: 2004Q4

REPORT INFORMATION
  Report Type: 
  Country: None (occurrence: None)
  Receive Date: 20041109
  Receipt Date: 20041027
  Transmission Date: 20050328
  Serious: Yes (Death, Hospitalization)
  Sender: FDA-Public Use
  Company Number: FR-SHR-03-003192

PATIENT
  Age: 68 Year
  Sex: Female
  Weight: 58 kg

DRUGS (2)
  1. FLUDARA [Suspect]
     Indication: WALDENSTROM'S MACROGLOBULINAEMIA
     Dosage: 35 MG, 1X/DAY, INTRAVENOUS
     Route: 042
     Dates: start: 20030116, end: 20030119
  2. RITUXAN [Suspect]
     Indication: WALDENSTROM'S MACROGLOBULINAEMIA
     Dosage: 640 MG, UNK, INTRAVENOUS
     Route: 042
     Dates: start: 20030116

REACTIONS (8)
  - AMNESIA [None]
  - CIRCADIAN RHYTHM SLEEP DISORDER [None]
  - CONFUSIONAL STATE [None]
  - DRUG RESISTANCE [None]
  - LYMPHOMA [None]
  - MALIGNANT NEOPLASM PROGRESSION [None]
  - MEMORY IMPAIRMENT [None]
  - NERVOUS SYSTEM DISORDER [None]
